FAERS Safety Report 6067901-2 (Version None)
Quarter: 2009Q1

REPORT INFORMATION
  Report Type: 
  Country: None (occurrence: None)
  Receive Date: 20090203
  Receipt Date: 20090122
  Transmission Date: 20090719
  Serious: Yes (Hospitalization, Other)
  Sender: FDA-Public Use
  Company Number: 1-17368629

PATIENT
  Age: 56 Year
  Sex: Male

DRUGS (8)
  1. AMIODARONE HCL [Suspect]
     Indication: DISEASE RECURRENCE
     Dosage: 400 MG DAILY, ORAL
     Route: 048
  2. AMIODARONE HCL [Suspect]
     Indication: VENTRICULAR TACHYCARDIA
     Dosage: 400 MG DAILY, ORAL
     Route: 048
  3. MEXILETINE HYDROCHLORIDE [Concomitant]
  4. FUROSEMIDE [Concomitant]
  5. SPIRONOLACTONE [Concomitant]
  6. REMIPRIL [Concomitant]
  7. LOSARTAN [Concomitant]
  8. DIGOXIN [Concomitant]

REACTIONS (6)
  - CARDIOMEGALY [None]
  - CELL DEATH [None]
  - INTERSTITIAL LUNG DISEASE [None]
  - PLEURAL EFFUSION [None]
  - PULMONARY CONGESTION [None]
  - VENOUS PRESSURE JUGULAR INCREASED [None]
